FAERS Safety Report 9758470 (Version 1)
Quarter: 2013Q4

REPORT INFORMATION
  Report Type: Spontaneous
  Country: US (occurrence: None)
  Receive Date: 20131216
  Receipt Date: 20131216
  Transmission Date: 20140711
  Serious: No
  Sender: FDA-Public Use
  Company Number: CABO-13002517

PATIENT
  Age: 19 Year
  Sex: Male
  Weight: 53 kg

DRUGS (1)
  1. COMETRIQ [Suspect]
     Indication: BRAIN NEOPLASM
     Dosage: 60 MG, QD. ORAL?40 MG, QD, ORAL

REACTIONS (4)
  - Gastrooesophageal reflux disease [None]
  - Pain in extremity [None]
  - Vomiting [None]
  - Decreased appetite [None]
